FAERS Safety Report 6882304-6 (Version None)
Quarter: 2010Q3

REPORT INFORMATION
  Report Type: 
  Country: None (occurrence: None)
  Receive Date: 20100729
  Receipt Date: 20090707
  Transmission Date: 20110219
  Serious: No
  Sender: FDA-Public Use
  Company Number: US-MYLANLABS-2009S1012065

PATIENT
  Age: 64 Year
  Sex: Female
  Weight: 48.08 kg

DRUGS (4)
  1. LEVOTHYROXINE SODIUM [Suspect]
     Indication: DIARRHOEA
     Route: 048
     Dates: start: 20081001, end: 20090601
  2. LEVOTHYROXINE SODIUM [Suspect]
     Indication: TREMOR
     Route: 048
     Dates: start: 20081001, end: 20090601
  3. LEVOTHYROXINE SODIUM [Suspect]
     Indication: WEIGHT DECREASED
     Route: 048
     Dates: start: 20081001, end: 20090601
  4. LEVOTHYROXINE SODIUM [Suspect]
     Indication: DIZZINESS
     Route: 048
     Dates: start: 20081001, end: 20090601

REACTIONS (7)
  - DEPRESSION [None]
  - DIARRHOEA [None]
  - HOT FLUSH [None]
  - NIGHT SWEATS [None]
  - PANIC ATTACK [None]
  - PARAESTHESIA [None]
  - VAGINAL DISCHARGE [None]
